FAERS Safety Report 16531425 (Version 1)
Quarter: 2019Q3

REPORT INFORMATION
  Report Type: Spontaneous
  Country: JP (occurrence: JP)
  Receive Date: 20190705
  Receipt Date: 20190705
  Transmission Date: 20191004
  Serious: Yes (Other)
  Sender: FDA-Public Use
  Company Number: JP-PFIZER INC-2019272058

PATIENT

DRUGS (1)
  1. DALACIN S 600MG [Suspect]
     Active Substance: CLINDAMYCIN PHOSPHATE
     Dosage: UNK

REACTIONS (2)
  - Fluid retention [Not Recovered/Not Resolved]
  - Pleural effusion [Not Recovered/Not Resolved]
